FAERS Safety Report 14556704 (Version 4)
Quarter: 2019Q2

REPORT INFORMATION
  Report Type: Spontaneous
  Country: US (occurrence: US)
  Receive Date: 20180221
  Receipt Date: 20190516
  Transmission Date: 20190711
  Serious: Yes (Other)
  Sender: FDA-Public Use
  Company Number: US-PFIZER INC-2018074517

PATIENT
  Age: 54 Year
  Sex: Female

DRUGS (14)
  1. LORTAB [HYDROCODONE BITARTRATE;PARACETAMOL;PROMETHAZINE HYDROCHLORIDE] [Concomitant]
     Active Substance: ACETAMINOPHEN\HYDROCODONE\PROMETHAZINE
     Dosage: UNK
  2. VITAMIN D [Concomitant]
     Active Substance: VITAMIN D NOS
     Indication: HYPERKERATOSIS
     Dosage: 400 IU, UNK
     Route: 048
  3. VITAMIN D [Concomitant]
     Active Substance: VITAMIN D NOS
     Indication: PARAKERATOSIS
  4. NAPROXEN. [Concomitant]
     Active Substance: NAPROXEN
     Dosage: UNK
  5. BISOPROLOL [Concomitant]
     Active Substance: BISOPROLOL
     Dosage: 10 MG, UNK
  6. DIFLUCAN [Suspect]
     Active Substance: FLUCONAZOLE
     Dosage: 150 MG, 2X/DAY
     Route: 048
  7. NYSTATIN. [Concomitant]
     Active Substance: NYSTATIN
     Dosage: UNK UNK, 2X/DAY
     Route: 061
  8. VITAMIN D [Concomitant]
     Active Substance: VITAMIN D NOS
     Indication: EOSINOPHILIA
  9. PRILOSEC [Concomitant]
     Active Substance: OMEPRAZOLE MAGNESIUM
     Dosage: UNK
  10. DIFLUCAN [Suspect]
     Active Substance: FLUCONAZOLE
     Dosage: UNK
     Dates: start: 20160703
  11. LOSARTAN. [Concomitant]
     Active Substance: LOSARTAN
     Dosage: UNK
  12. DIFLUCAN [Suspect]
     Active Substance: FLUCONAZOLE
     Indication: SKIN INFECTION
     Dosage: 150 MG, 1X/DAY
     Route: 048
  13. DIFLUCAN [Suspect]
     Active Substance: FLUCONAZOLE
     Indication: FUNGAL INFECTION
     Dosage: 1 DF, DAILY
     Route: 048
     Dates: start: 201603, end: 201603
  14. VITAMIN D [Concomitant]
     Active Substance: VITAMIN D NOS
     Indication: ECZEMA

REACTIONS (13)
  - Hair disorder [Unknown]
  - Skin burning sensation [Not Recovered/Not Resolved]
  - Alopecia [Recovered/Resolved]
  - Otorrhoea [Recovered/Resolved]
  - Nervous system disorder [Unknown]
  - Pain [Not Recovered/Not Resolved]
  - Headache [Unknown]
  - Skin odour abnormal [Recovered/Resolved]
  - Herpes virus infection [Not Recovered/Not Resolved]
  - Burns first degree [Unknown]
  - Memory impairment [Unknown]
  - Skin lesion [Not Recovered/Not Resolved]
  - Cardiac failure [Unknown]

NARRATIVE: CASE EVENT DATE: 2016
